FAERS Safety Report 25435449 (Version 1)
Quarter: 2025Q2

REPORT INFORMATION
  Report Type: Spontaneous
  Country: US (occurrence: US)
  Receive Date: 20250613
  Receipt Date: 20250613
  Transmission Date: 20250717
  Serious: No
  Sender: IPSEN BIOPHARMACEUTICALS, INC.
  Company Number: US-IPSEN Group, Research and Development-2025-13873

PATIENT
  Sex: Female

DRUGS (1)
  1. DYSPORT [Suspect]
     Active Substance: ABOBOTULINUMTOXINA
     Indication: Skin cosmetic procedure
     Route: 065
     Dates: start: 20250530, end: 20250530

REACTIONS (6)
  - Headache [Unknown]
  - Neck pain [Unknown]
  - Fatigue [Unknown]
  - Nausea [Unknown]
  - Malaise [Unknown]
  - Anxiety [Unknown]
